APPROVED DRUG PRODUCT: CEFACLOR
Active Ingredient: CEFACLOR
Strength: EQ 250MG BASE
Dosage Form/Route: CAPSULE;ORAL
Application: A065146 | Product #001
Applicant: YUNG SHIN PHARMACEUTICAL INDUSTRIAL CO LTD
Approved: Jan 22, 2004 | RLD: No | RS: No | Type: RX